FAERS Safety Report 18071972 (Version 1)
Quarter: 2020Q3

REPORT INFORMATION
  Report Type: Spontaneous
  Country: US (occurrence: US)
  Receive Date: 20200727
  Receipt Date: 20200727
  Transmission Date: 20201103
  Serious: No
  Sender: FDA-Public Use
  Company Number: US-PFIZER INC-2020282419

PATIENT
  Age: 25 Year
  Sex: Female

DRUGS (10)
  1. EFFEXOR [Suspect]
     Active Substance: VENLAFAXINE HYDROCHLORIDE
     Dosage: UNK
  2. NUVARING [Concomitant]
     Active Substance: ETHINYL ESTRADIOL\ETONOGESTREL
     Dosage: UNK, (.12?.015MG VAG RING)
  3. FLONASE ALLERGY RELIEF [Concomitant]
     Active Substance: FLUTICASONE PROPIONATE
     Dosage: UNK
  4. D MANNOSE [Concomitant]
     Dosage: UNK, (99% POWDER)
  5. XELJANZ XR [Suspect]
     Active Substance: TOFACITINIB CITRATE
     Indication: RHEUMATOID ARTHRITIS
     Dosage: 11 MG, DAILY
     Route: 048
     Dates: start: 202006
  6. L?THEANINE [Concomitant]
     Active Substance: DIETARY SUPPLEMENT
     Dosage: UNK, (99.1% POWDER)
  7. IBUPROFEN. [Concomitant]
     Active Substance: IBUPROFEN
     Dosage: UNK, (100 MG TABLET)
  8. EFFEXOR XR [Concomitant]
     Active Substance: VENLAFAXINE HYDROCHLORIDE
     Dosage: UNK [150 MG CAP]
  9. PREDNISONE. [Concomitant]
     Active Substance: PREDNISONE
     Dosage: UNK, (10 MG)
  10. MELATONIN/THEANINE [Concomitant]
     Dosage: UNK, (3MG CAPSULE)

REACTIONS (3)
  - Constipation [Unknown]
  - Nocturia [Unknown]
  - Insomnia [Unknown]
